FAERS Safety Report 9796021 (Version 2)
Quarter: 2014Q1

REPORT INFORMATION
  Report Type: Report from Study
  Country: US (occurrence: US)
  Receive Date: 20140103
  Receipt Date: 20140103
  Transmission Date: 20141002
  Serious: Yes (Hospitalization)
  Sender: FDA-Public Use
  Company Number: US-UCBSA-037398

PATIENT
  Age: 37 Year
  Sex: Female
  Weight: 57.4 kg

DRUGS (1)
  1. CIMZIA [Suspect]
     Indication: CROHN^S DISEASE
     Dosage: FOR FIRST THREE DOSES 400 MG 1 TIME EVERY 2 WEEKS;NO. OF DOSES RECEIVED: 39
     Route: 058
     Dates: start: 20081209

REACTIONS (2)
  - Hysterectomy [Recovering/Resolving]
  - Menstrual disorder [Recovered/Resolved]
